FAERS Safety Report 12739582 (Version 1)
Quarter: 2016Q3

REPORT INFORMATION
  Report Type: Spontaneous
  Country: US (occurrence: US)
  Receive Date: 20160913
  Receipt Date: 20160913
  Transmission Date: 20161109
  Serious: Yes (Other)
  Sender: FDA-Public Use
  Company Number: None

PATIENT
  Age: 54 Year
  Sex: Female
  Weight: 85 kg

DRUGS (1)
  1. AMLODIPINE [Suspect]
     Active Substance: AMLODIPINE BESYLATE
     Indication: HYPERTENSION
     Route: 048
     Dates: start: 20160907, end: 20160907

REACTIONS (6)
  - Hypoaesthesia [None]
  - Chest pain [None]
  - Dizziness [None]
  - Dyspnoea [None]
  - Heart rate irregular [None]
  - Syncope [None]

NARRATIVE: CASE EVENT DATE: 20160907
